FAERS Safety Report 20372900 (Version 2)
Quarter: 2025Q2

REPORT INFORMATION
  Report Type: Report from Study
  Country: IT (occurrence: IT)
  Receive Date: 20220125
  Receipt Date: 20250621
  Transmission Date: 20250716
  Serious: Yes (Hospitalization, Other)
  Sender: AUROBINDO
  Company Number: IT-STADA-240627

PATIENT
  Age: 79 Year
  Sex: Female

DRUGS (4)
  1. AMIODARONE [Suspect]
     Active Substance: AMIODARONE
     Indication: Atrial fibrillation
     Route: 065
  2. CEFTOLOZANE SULFATE\TAZOBACTAM SODIUM [Suspect]
     Active Substance: CEFTOLOZANE SULFATE\TAZOBACTAM SODIUM
     Indication: Bacteraemia
     Dosage: 250 MILLIGRAM, 3 TIMES A DAY
     Route: 042
  3. CEFTOLOZANE SULFATE\TAZOBACTAM SODIUM [Suspect]
     Active Substance: CEFTOLOZANE SULFATE\TAZOBACTAM SODIUM
     Route: 042
  4. FLUINDIONE [Suspect]
     Active Substance: FLUINDIONE
     Indication: Pulmonary embolism
     Route: 065

REACTIONS (1)
  - Agranulocytosis [Recovering/Resolving]
